FAERS Safety Report 7208863-1 (Version None)
Quarter: 2011Q1

REPORT INFORMATION
  Report Type: 
  Country: None (occurrence: None)
  Receive Date: 20110104
  Receipt Date: 20101221
  Transmission Date: 20110831
  Serious: Yes (Hospitalization, Other)
  Sender: FDA-Public Use
  Company Number: PHHY2010US84794

PATIENT
  Sex: Male
  Weight: 77.54 kg

DRUGS (8)
  1. TASIGNA [Suspect]
     Dosage: 300 MG/DAY
  2. PERCOCET [Concomitant]
     Dosage: 5/325 2 TAB Q4 4HRS
     Route: 048
     Dates: start: 20101228
  3. TASIGNA [Suspect]
     Dosage: 300 MG, QD
     Route: 048
     Dates: start: 20101012
  4. TASIGNA [Suspect]
     Indication: CHRONIC MYELOID LEUKAEMIA
     Dosage: 300 MG, QD
     Route: 048
     Dates: start: 20100831
  5. TASIGNA [Suspect]
     Dosage: 800 MG, QD
     Route: 048
     Dates: start: 20100903
  6. HYDREA [Concomitant]
     Indication: CHRONIC MYELOID LEUKAEMIA
     Dosage: 2 G, DAILY
     Route: 048
     Dates: start: 20100109
  7. FOLIC ACID [Concomitant]
     Indication: CHRONIC MYELOID LEUKAEMIA
     Dosage: 1 MG, QD
     Route: 048
     Dates: start: 20100309
  8. ALLOPURINOL [Concomitant]
     Indication: CHRONIC MYELOID LEUKAEMIA
     Dosage: 300 MG, UNK
     Route: 048
     Dates: start: 20100902

REACTIONS (12)
  - BACK PAIN [None]
  - FEBRILE NEUTROPENIA [None]
  - BLOOD PRESSURE DECREASED [None]
  - PALPITATIONS [None]
  - MUSCULOSKELETAL PAIN [None]
  - THROMBOCYTOPENIA [None]
  - DYSPNOEA EXERTIONAL [None]
  - FATIGUE [None]
  - BRADYCARDIA [None]
  - FEELING ABNORMAL [None]
  - ANXIETY [None]
  - VISION BLURRED [None]
